FAERS Safety Report 4723484-8 (Version None)
Quarter: 2005Q3

REPORT INFORMATION
  Report Type: 
  Country: None (occurrence: None)
  Receive Date: 20050725
  Receipt Date: 20050714
  Transmission Date: 20060218
  Serious: Yes (Other)
  Sender: FDA-Public Use
  Company Number: CH-GLAXOSMITHKLINE-B0388360A

PATIENT

DRUGS (1)
  1. AUGMENTIN '125' [Suspect]
     Dosage: 6G PER DAY
     Route: 042

REACTIONS (4)
  - CONFUSIONAL STATE [None]
  - DELIRIUM [None]
  - NERVOUS SYSTEM DISORDER [None]
  - OVERDOSE [None]
